FAERS Safety Report 24841699 (Version 1)
Quarter: 2025Q1

REPORT INFORMATION
  Report Type: Spontaneous
  Country: CO (occurrence: CO)
  Receive Date: 20250114
  Receipt Date: 20250114
  Transmission Date: 20250409
  Serious: Yes (Hospitalization)
  Sender: BOEHRINGER INGELHEIM
  Company Number: CO-BoehringerIngelheim-2025-BI-002191

PATIENT
  Age: 66 Year
  Sex: Male
  Weight: 74 kg

DRUGS (1)
  1. OFEV [Suspect]
     Active Substance: NINTEDANIB
     Indication: Pulmonary fibrosis

REACTIONS (3)
  - Choking [Recovered/Resolved]
  - Chest pain [Recovered/Resolved]
  - Cough [Recovered/Resolved]
